FAERS Safety Report 22217297 (Version 1)
Quarter: 2023Q2

REPORT INFORMATION
  Report Type: Spontaneous
  Country: FR (occurrence: FR)
  Receive Date: 20230417
  Receipt Date: 20230417
  Transmission Date: 20230721
  Serious: Yes (Hospitalization)
  Sender: FDA-Public Use
  Company Number: FR-ROCHE-3320889

PATIENT
  Age: 62 Year
  Sex: Male
  Weight: 62.2 kg

DRUGS (2)
  1. PEMETREXED DIARGININE [Suspect]
     Active Substance: PEMETREXED DIARGININE
     Indication: Neoplasm
     Dosage: UNK
     Route: 042
     Dates: start: 20220911, end: 20221202
  2. ATEZOLIZUMAB [Suspect]
     Active Substance: ATEZOLIZUMAB
     Indication: Neoplasm
     Dosage: UNK
     Route: 042
     Dates: start: 20221223

REACTIONS (2)
  - Dyspnoea [Not Recovered/Not Resolved]
  - Pyrexia [Not Recovered/Not Resolved]

NARRATIVE: CASE EVENT DATE: 20230224
